FAERS Safety Report 4737436-5 (Version None)
Quarter: 2005Q3

REPORT INFORMATION
  Report Type: 
  Country: None (occurrence: None)
  Receive Date: 20050805
  Receipt Date: 20050524
  Transmission Date: 20060218
  Serious: Yes (Death, Other)
  Sender: FDA-Public Use
  Company Number: 11298

PATIENT
  Age: 57 Year
  Sex: Male

DRUGS (6)
  1. MITOXANTRONE [Suspect]
     Indication: CHRONIC LYMPHOCYTIC LEUKAEMIA
     Dosage: 10 MG/M2 OTHER IV
     Route: 042
  2. FLUDARABINE PHOSPHATE [Suspect]
     Indication: CHRONIC LYMPHOCYTIC LEUKAEMIA
     Dosage: 30 MG/M2  OTHER IV
     Route: 042
  3. CYTARABINE [Suspect]
  4. CYCLOPHOSPHAMIDE [Suspect]
  5. MELPHALEN [Suspect]
  6. GEMTUZUMAB OZOGAMICIN [Suspect]

REACTIONS (2)
  - PNEUMONIA ASPERGILLUS [None]
  - REFRACTORY ANAEMIA [None]
